FAERS Safety Report 8320227-6 (Version None)
Quarter: 2012Q2

REPORT INFORMATION
  Report Type: 
  Country: None (occurrence: None)
  Receive Date: 20120430
  Receipt Date: 20120420
  Transmission Date: 20120825
  Serious: No
  Sender: FDA-Public Use
  Company Number: US-BIOGENIDEC-2012BI003505

PATIENT
  Sex: Female

DRUGS (3)
  1. AVONEX [Suspect]
     Indication: MULTIPLE SCLEROSIS
     Route: 030
     Dates: start: 20110204, end: 20120201
  2. BENADRYL [Concomitant]
     Indication: PREMEDICATION
     Dates: start: 20111201
  3. TRAMADOL [Concomitant]
     Indication: ARTHRALGIA

REACTIONS (8)
  - PAIN [None]
  - RASH [None]
  - PRURITUS GENERALISED [None]
  - NAUSEA [None]
  - SKIN WARM [None]
  - INSOMNIA [None]
  - MUSCULOSKELETAL PAIN [None]
  - HEADACHE [None]
